FAERS Safety Report 8318357-8 (Version None)
Quarter: 2012Q2

REPORT INFORMATION
  Report Type: 
  Country: None (occurrence: None)
  Receive Date: 20120427
  Receipt Date: 20120418
  Transmission Date: 20120825
  Serious: Yes (Other)
  Sender: FDA-Public Use
  Company Number: IL-AMGEN-ISRSP2012025965

PATIENT
  Age: 75 Year
  Sex: Male

DRUGS (6)
  1. NEULASTIM [Suspect]
     Indication: PROPHYLAXIS
     Dosage: UNK
  2. DOXORUBICIN HCL [Concomitant]
     Indication: PROPHYLAXIS
     Dosage: UNK
  3. MABTHERA [Concomitant]
     Indication: PROPHYLAXIS
     Dosage: UNK
  4. PREDNISONE [Concomitant]
     Indication: PROPHYLAXIS
     Dosage: UNK
  5. CYCLOPHOSPHAMIDE [Concomitant]
     Indication: PROPHYLAXIS
  6. VINCRISTINE [Concomitant]
     Indication: PROPHYLAXIS
     Dosage: UNK

REACTIONS (3)
  - ACUTE MYOCARDIAL INFARCTION [None]
  - DYSPNOEA [None]
  - WHITE BLOOD CELL COUNT INCREASED [None]
